FAERS Safety Report 11259520 (Version 2)
Quarter: 2015Q3

REPORT INFORMATION
  Report Type: Spontaneous
  Country: US (occurrence: US)
  Receive Date: 20150710
  Receipt Date: 20150715
  Transmission Date: 20151125
  Serious: Yes (Death, Hospitalization)
  Sender: FDA-Public Use
  Company Number: US-JNJFOC-20150706336

PATIENT
  Age: 8 Decade
  Sex: Female

DRUGS (2)
  1. XARELTO [Suspect]
     Active Substance: RIVAROXABAN
     Indication: THROMBOSIS PROPHYLAXIS
     Route: 048
     Dates: start: 201506, end: 201506
  2. XARELTO [Suspect]
     Active Substance: RIVAROXABAN
     Indication: KNEE ARTHROPLASTY
     Route: 048
     Dates: start: 201506, end: 201506

REACTIONS (7)
  - Procedural complication [Unknown]
  - Pulmonary hypertension [Unknown]
  - Haemorrhage [Not Recovered/Not Resolved]
  - Post procedural complication [Unknown]
  - Death [Fatal]
  - Chest pain [Not Recovered/Not Resolved]
  - Vascular operation [Unknown]

NARRATIVE: CASE EVENT DATE: 201506
